FAERS Safety Report 9757254 (Version 1)
Quarter: 2013Q4

REPORT INFORMATION
  Report Type: Report from Study
  Country: US (occurrence: US)
  Receive Date: 20131213
  Receipt Date: 20131213
  Transmission Date: 20140711
  Serious: Yes (Hospitalization, Other)
  Sender: FDA-Public Use
  Company Number: US-ABBVIE-13P-163-1176906-00

PATIENT
  Age: 68 Year
  Sex: Female

DRUGS (2)
  1. HUMIRA [Suspect]
     Indication: CROHN^S DISEASE
     Dates: start: 20130905
  2. CROHN^S PILLS [Concomitant]
     Indication: CROHN^S DISEASE

REACTIONS (6)
  - Rectal haemorrhage [Not Recovered/Not Resolved]
  - Rectal haemorrhage [Unknown]
  - Intestinal resection [Unknown]
  - Memory impairment [Unknown]
  - White blood cell count increased [Unknown]
  - Drug ineffective [Unknown]
